FAERS Safety Report 8263931-0 (Version None)
Quarter: 2012Q2

REPORT INFORMATION
  Report Type: 
  Country: None (occurrence: None)
  Receive Date: 20120406
  Receipt Date: 20120327
  Transmission Date: 20120825
  Serious: Yes (Other)
  Sender: FDA-Public Use
  Company Number: AR-AMGEN-ARGSP2012017477

PATIENT
  Age: 51 Year
  Sex: Female

DRUGS (2)
  1. ENBREL [Suspect]
     Indication: RHEUMATOID ARTHRITIS
     Dosage: 50 MG, WEEKLY
     Route: 058
     Dates: start: 20100701, end: 20120314
  2. LEFLUNOMIDE [Concomitant]
     Dosage: 20 MG, 1X/DAY

REACTIONS (3)
  - CUTANEOUS LUPUS ERYTHEMATOSUS [None]
  - SKIN LESION [None]
  - ANTINUCLEAR ANTIBODY POSITIVE [None]
